FAERS Safety Report 15538018 (Version 1)
Quarter: 2018Q4

REPORT INFORMATION
  Report Type: Spontaneous
  Country: CA (occurrence: CA)
  Receive Date: 20181022
  Receipt Date: 20181022
  Transmission Date: 20190205
  Serious: Yes (Hospitalization)
  Sender: FDA-Public Use
  Company Number: CA-PFIZER INC-2017283959

PATIENT
  Age: 53 Year
  Sex: Female

DRUGS (2)
  1. MYFORTIC [Suspect]
     Active Substance: MYCOPHENOLATE SODIUM
     Dosage: UNK
  2. RAPAMUNE [Suspect]
     Active Substance: SIROLIMUS
     Indication: RENAL TRANSPLANT
     Dosage: 3 MG, DAILY
     Dates: start: 201805

REACTIONS (4)
  - Abdominal pain [Not Recovered/Not Resolved]
  - Electrolyte imbalance [Unknown]
  - Blood potassium decreased [Unknown]
  - Pneumonitis [Unknown]
